FAERS Safety Report 5994972-1 (Version None)
Quarter: 2008Q4

REPORT INFORMATION
  Report Type: 
  Country: None (occurrence: None)
  Receive Date: 20081210
  Receipt Date: 20081202
  Transmission Date: 20090506
  Serious: Yes (Other)
  Sender: FDA-Public Use
  Company Number: 2006JP005315

PATIENT
  Age: 3 Year
  Sex: Female

DRUGS (18)
  1. PROTOPIC [Suspect]
     Indication: DERMATITIS ATOPIC
     Dosage: 0.03%, TOPICAL
     Route: 061
     Dates: start: 20071228, end: 20080103
  2. PROTOPIC [Suspect]
     Indication: DERMATITIS ATOPIC
     Dosage: 0.03%, TOPICAL
     Route: 061
     Dates: start: 20060331
  3. HIRUDOID (HEPARINOID) LOTION [Concomitant]
  4. LIDOMEX (PREDNISOLONE VALEROACETATE) LOTION [Concomitant]
  5. PALDES (CLOBETASONE BUTYRATE) LOTION [Concomitant]
  6. WHITE PETROLEUM (PETROLATUM) [Concomitant]
  7. ALLOMIDON (DEPRODONE PROPIONATE) OINTMENT [Concomitant]
  8. LIDOMEX (PREDNISOLONE VALEROACETATE) OINTMENT [Concomitant]
  9. HIRUDOID (HEPARINOID) OINTMENT [Concomitant]
  10. SPEEL OINTMENT [Concomitant]
  11. FOSMICIN (FOSFOMYCIN CALCIUM) GRANULE [Concomitant]
  12. FAROM (FAROPENEM SODIUM) DRY SYRUP [Concomitant]
  13. ZADITEN (KETOTIFEN) DRY SYRUP [Concomitant]
  14. ELTACIN (GENTAMICIN SULFATE) OINTMENT [Concomitant]
  15. DERMOSOL G (GENTAMICIN SULFATE) OINTMENT [Concomitant]
  16. ZINC OXIDE (ZINC OXIDE) OINTMENT [Concomitant]
  17. CASAL (VIDARABINE) CREAM [Concomitant]
  18. ALEISON (EPINASTINE) DRY SYRUP [Concomitant]

REACTIONS (4)
  - HERPES ZOSTER [None]
  - IMPETIGO [None]
  - KAPOSI'S VARICELLIFORM ERUPTION [None]
  - SKIN PAPILLOMA [None]
